FAERS Safety Report 13188692 (Version 1)
Quarter: 2017Q1

REPORT INFORMATION
  Report Type: Spontaneous
  Country: US (occurrence: US)
  Receive Date: 20170205
  Receipt Date: 20170205
  Transmission Date: 20170428
  Serious: Yes (Disabling)
  Sender: FDA-Public Use
  Company Number: None

PATIENT
  Age: 71 Year
  Sex: Male
  Weight: 74.7 kg

DRUGS (2)
  1. BIOTIN [Concomitant]
     Active Substance: BIOTIN
  2. DUTASTERIDE. [Suspect]
     Active Substance: DUTASTERIDE
     Indication: BENIGN PROSTATIC HYPERPLASIA
     Dosage: ?          QUANTITY:1 CAPSULE(S);?
     Route: 048
     Dates: start: 20160801

REACTIONS (5)
  - Semen volume decreased [None]
  - Weight increased [None]
  - Libido decreased [None]
  - Breast enlargement [None]
  - Nail disorder [None]

NARRATIVE: CASE EVENT DATE: 20161101
